FAERS Safety Report 24193085 (Version 1)
Quarter: 2024Q3

REPORT INFORMATION
  Report Type: Spontaneous
  Country: SE (occurrence: SE)
  Receive Date: 20240809
  Receipt Date: 20240809
  Transmission Date: 20241016
  Serious: Yes (Hospitalization, Other)
  Sender: NOVAST
  Company Number: SE-NOVAST LABORATORIES INC.-2024NOV000287

PATIENT
  Age: 56 Year
  Sex: Female

DRUGS (1)
  1. DOCETAXEL [Suspect]
     Active Substance: DOCETAXEL\DOCETAXEL ANHYDROUS
     Indication: Breast cancer
     Dosage: 90 MILLIGRAM/SQ. METER
     Route: 065

REACTIONS (1)
  - Photosensitivity reaction [Recovered/Resolved]
